FAERS Safety Report 15011615 (Version 1)
Quarter: 2018Q2

REPORT INFORMATION
  Report Type: Spontaneous
  Country: BR (occurrence: BR)
  Receive Date: 20180614
  Receipt Date: 20180614
  Transmission Date: 20180711
  Serious: Yes (Hospitalization)
  Sender: FDA-Public Use
  Company Number: BR-GLAXOSMITHKLINE-BR2018GSK103231

PATIENT
  Age: 11 Year
  Sex: Female
  Weight: 32 kg

DRUGS (6)
  1. ROCEFIN [Suspect]
     Active Substance: CEFTRIAXONE SODIUM
     Indication: SINUSITIS
     Dosage: UNK
     Route: 042
     Dates: start: 20180520
  2. ZINNAT [Suspect]
     Active Substance: CEFUROXIME AXETIL
     Indication: SINUSITIS
     Dosage: 1 DF, BID
     Route: 048
     Dates: end: 20180603
  3. ZINNAT [Suspect]
     Active Substance: CEFUROXIME AXETIL
     Indication: SINUSITIS
     Dosage: UNK
     Route: 042
     Dates: start: 20180525
  4. CECLOR [Suspect]
     Active Substance: CEFACLOR
     Indication: PRODUCT USED FOR UNKNOWN INDICATION
     Dosage: UNK
     Route: 048
     Dates: end: 20180514
  5. AMOXICILLIN. [Suspect]
     Active Substance: AMOXICILLIN
     Indication: PHARYNGEAL INFLAMMATION
     Dosage: UNK
     Route: 048
     Dates: start: 20180420
  6. ZINACEF [Suspect]
     Active Substance: CEFUROXIME SODIUM
     Indication: PRODUCT USED FOR UNKNOWN INDICATION
     Dosage: UNK
     Route: 042

REACTIONS (6)
  - Gastritis [Unknown]
  - Incorrect product formulation administered [Recovered/Resolved]
  - Sinusitis [Unknown]
  - Vomiting [Not Recovered/Not Resolved]
  - Product prescribing issue [Recovered/Resolved]
  - Back pain [Unknown]
